FAERS Safety Report 14256799 (Version 2)
Quarter: 2017Q4

REPORT INFORMATION
  Report Type: Spontaneous
  Country: US (occurrence: JP)
  Receive Date: 20171206
  Receipt Date: 20171218
  Transmission Date: 20180321
  Serious: Yes (Other)
  Sender: FDA-Public Use
  Company Number: US-SUNOVION-2017SUN005216

PATIENT
  Age: 68 Year
  Sex: Male
  Weight: 45.2 kg

DRUGS (1)
  1. GLYCOPYRROLATE. [Suspect]
     Active Substance: GLYCOPYRROLATE
     Indication: CHRONIC OBSTRUCTIVE PULMONARY DISEASE
     Dosage: 50 ?G, QD
     Route: 055
     Dates: end: 20150831

REACTIONS (4)
  - Sputum purulent [Not Recovered/Not Resolved]
  - Dyspnoea [Unknown]
  - Chronic obstructive pulmonary disease [Not Recovered/Not Resolved]
  - Wheezing [Unknown]

NARRATIVE: CASE EVENT DATE: 20150828
